FAERS Safety Report 22608115 (Version 1)
Quarter: 2023Q2

REPORT INFORMATION
  Report Type: Other
  Country: US (occurrence: US)
  Receive Date: 20230616
  Receipt Date: 20230616
  Transmission Date: 20230721
  Serious: No
  Sender: FDA-Public Use
  Company Number: US-ALVOGEN-2023089359

PATIENT
  Age: 16 Year
  Sex: Female

DRUGS (6)
  1. LORAZEPAM [Suspect]
     Active Substance: LORAZEPAM
     Indication: Catatonia
  2. SERTRALINE [Suspect]
     Active Substance: SERTRALINE HYDROCHLORIDE
     Indication: Schizophrenia
  3. LORAZEPAM [Suspect]
     Active Substance: LORAZEPAM
     Indication: Catatonia
     Route: 030
  4. OLANZAPINE [Concomitant]
     Active Substance: OLANZAPINE
     Indication: Catatonia
  5. OLANZAPINE [Concomitant]
     Active Substance: OLANZAPINE
     Indication: Catatonia
     Dosage: SWITCHED TO ZYDIS 5MG BEDTIME.
  6. OLANZAPINE [Concomitant]
     Active Substance: OLANZAPINE
     Indication: Catatonia
     Dosage: ON DAY 4, INCREASED TO ZYDIS 7.5MG BEDTIME AND ON DAY 6 AGAIN REDUCED TO 5MG.

REACTIONS (3)
  - Off label use [Unknown]
  - Intentional underdose [Unknown]
  - Hypotension [Unknown]
